FAERS Safety Report 23874156 (Version 1)
Quarter: 2024Q2

REPORT INFORMATION
  Report Type: Spontaneous
  Country: US (occurrence: US)
  Receive Date: 20240520
  Receipt Date: 20240520
  Transmission Date: 20240716
  Serious: No
  Sender: FDA-Public Use
  Company Number: US-TEVA-VS-3195032

PATIENT
  Sex: Female

DRUGS (4)
  1. PENICILLIN [Suspect]
     Active Substance: PENICILLIN
     Indication: Product used for unknown indication
     Route: 065
  2. GABAPENTIN [Concomitant]
     Active Substance: GABAPENTIN
  3. TIZANIDINE [Concomitant]
     Active Substance: TIZANIDINE
  4. NATALIZUMAB [Concomitant]
     Active Substance: NATALIZUMAB

REACTIONS (1)
  - Urticaria [Unknown]
